FAERS Safety Report 5056119-8 (Version None)
Quarter: 2006Q3

REPORT INFORMATION
  Report Type: 
  Country: None (occurrence: None)
  Receive Date: 20060720
  Receipt Date: 20060119
  Transmission Date: 20061208
  Serious: Yes (Other)
  Sender: FDA-Public Use
  Company Number: US-GLAXOSMITHKLINE-A0591348A

PATIENT
  Age: 35 Year
  Sex: Female

DRUGS (3)
  1. PAXIL [Suspect]
     Indication: ANXIETY
     Route: 048
     Dates: start: 20040722
  2. AUGMENTIN '125' [Concomitant]
     Dates: start: 20041101
  3. DIFLUCAN [Concomitant]
     Dates: start: 20041111

REACTIONS (9)
  - AFFECTIVE DISORDER [None]
  - BIPOLAR I DISORDER [None]
  - DELUSION [None]
  - MANIA [None]
  - MEDICATION ERROR [None]
  - OVERDOSE [None]
  - PSYCHOTIC DISORDER [None]
  - THEFT [None]
  - THINKING ABNORMAL [None]
